FAERS Safety Report 26117061 (Version 1)
Quarter: 2025Q4

REPORT INFORMATION
  Report Type: Spontaneous
  Country: EU (occurrence: EU)
  Receive Date: 20251203
  Receipt Date: 20251203
  Transmission Date: 20260118
  Serious: Yes (Other)
  Sender: MYLAN
  Company Number: EU-MYLANLABS-2025M1102320

PATIENT
  Age: 7 Decade
  Sex: Female

DRUGS (28)
  1. FENTANYL [Suspect]
     Active Substance: FENTANYL
     Indication: Breakthrough pain
     Dosage: 100 MICROGRAM
  2. FENTANYL [Suspect]
     Active Substance: FENTANYL
     Dosage: 100 MICROGRAM
  3. FENTANYL [Suspect]
     Active Substance: FENTANYL
     Dosage: 100 MICROGRAM
     Route: 060
  4. FENTANYL [Suspect]
     Active Substance: FENTANYL
     Dosage: 100 MICROGRAM
     Route: 060
  5. FENTANYL [Suspect]
     Active Substance: FENTANYL
     Dosage: 300 MICROGRAM (DOSE TITRATED FROM 100 MCG TO 300 MCG)
  6. FENTANYL [Suspect]
     Active Substance: FENTANYL
     Dosage: 300 MICROGRAM (DOSE TITRATED FROM 100 MCG TO 300 MCG)
  7. FENTANYL [Suspect]
     Active Substance: FENTANYL
     Dosage: 300 MICROGRAM (DOSE TITRATED FROM 100 MCG TO 300 MCG)
     Route: 060
  8. FENTANYL [Suspect]
     Active Substance: FENTANYL
     Dosage: 300 MICROGRAM (DOSE TITRATED FROM 100 MCG TO 300 MCG)
     Route: 060
  9. FENTANYL [Suspect]
     Active Substance: FENTANYL
     Dosage: UNK, PRN (SUBLINGUAL FENTANYL WAS MAINTAINED AS NEEDED)
  10. FENTANYL [Suspect]
     Active Substance: FENTANYL
     Dosage: UNK, PRN (SUBLINGUAL FENTANYL WAS MAINTAINED AS NEEDED)
     Route: 060
  11. FENTANYL [Suspect]
     Active Substance: FENTANYL
     Dosage: UNK, PRN (SUBLINGUAL FENTANYL WAS MAINTAINED AS NEEDED)
  12. FENTANYL [Suspect]
     Active Substance: FENTANYL
     Dosage: UNK, PRN (SUBLINGUAL FENTANYL WAS MAINTAINED AS NEEDED)
     Route: 060
  13. FENTANYL [Suspect]
     Active Substance: FENTANYL
     Indication: Breakthrough pain
     Dosage: UNK
  14. FENTANYL [Suspect]
     Active Substance: FENTANYL
     Dosage: UNK
     Route: 062
  15. FENTANYL [Suspect]
     Active Substance: FENTANYL
     Dosage: UNK
     Route: 062
  16. FENTANYL [Suspect]
     Active Substance: FENTANYL
     Dosage: UNK
  17. MORPHINE [Concomitant]
     Active Substance: MORPHINE
     Indication: Breakthrough pain
     Dosage: UNK, PRN (IMMEDIATE RELEASE)
     Route: 060
  18. MORPHINE [Concomitant]
     Active Substance: MORPHINE
     Dosage: UNK, PRN (IMMEDIATE RELEASE)
  19. MORPHINE [Concomitant]
     Active Substance: MORPHINE
     Dosage: UNK, PRN (IMMEDIATE RELEASE)
  20. MORPHINE [Concomitant]
     Active Substance: MORPHINE
     Dosage: UNK, PRN (IMMEDIATE RELEASE)
     Route: 060
  21. MORPHINE [Concomitant]
     Active Substance: MORPHINE
     Dosage: UNK, PRN (50% REDUCTION IN DOSE; IMMEDIATE RELEASE; AS NEEDED)
     Route: 060
  22. MORPHINE [Concomitant]
     Active Substance: MORPHINE
     Dosage: UNK, PRN (50% REDUCTION IN DOSE; IMMEDIATE RELEASE; AS NEEDED)
  23. MORPHINE [Concomitant]
     Active Substance: MORPHINE
     Dosage: UNK, PRN (50% REDUCTION IN DOSE; IMMEDIATE RELEASE; AS NEEDED)
  24. MORPHINE [Concomitant]
     Active Substance: MORPHINE
     Dosage: UNK, PRN (50% REDUCTION IN DOSE; IMMEDIATE RELEASE; AS NEEDED)
     Route: 060
  25. ACETAMINOPHEN [Concomitant]
     Active Substance: ACETAMINOPHEN
     Indication: Breakthrough pain
     Dosage: UNK
  26. ACETAMINOPHEN [Concomitant]
     Active Substance: ACETAMINOPHEN
     Dosage: UNK
     Route: 065
  27. ACETAMINOPHEN [Concomitant]
     Active Substance: ACETAMINOPHEN
     Dosage: UNK
     Route: 065
  28. ACETAMINOPHEN [Concomitant]
     Active Substance: ACETAMINOPHEN
     Dosage: UNK

REACTIONS (1)
  - Treatment failure [Unknown]
